FAERS Safety Report 24446196 (Version 1)
Quarter: 2024Q4

REPORT INFORMATION
  Report Type: Spontaneous
  Country: US (occurrence: None)
  Receive Date: 20241016
  Receipt Date: 20241016
  Transmission Date: 20250115
  Serious: No
  Sender: Public
  Company Number: None

PATIENT
  Age: 63 Year
  Sex: Female

DRUGS (1)
  1. TADALAFIL [Suspect]
     Active Substance: TADALAFIL
     Indication: Pulmonary hypertension
     Dosage: FREQUENCY : DAILY;?
     Route: 048
     Dates: start: 20240723, end: 20240729

REACTIONS (4)
  - Epistaxis [None]
  - Contusion [None]
  - Adverse drug reaction [None]
  - Drug intolerance [None]

NARRATIVE: CASE EVENT DATE: 20240729
